FAERS Safety Report 6296162-4 (Version None)
Quarter: 2009Q3

REPORT INFORMATION
  Report Type: 
  Country: None (occurrence: None)
  Receive Date: 20090804
  Receipt Date: 20090728
  Transmission Date: 20100115
  Serious: Yes (Hospitalization, Other)
  Sender: FDA-Public Use
  Company Number: JP-JNJFOC-20090708715

PATIENT
  Sex: Female

DRUGS (2)
  1. CRAVIT [Suspect]
     Indication: BRONCHITIS
     Route: 048
  2. LOXONIN [Suspect]
     Indication: FEELING HOT
     Route: 048

REACTIONS (3)
  - DRUG ERUPTION [None]
  - FACE OEDEMA [None]
  - GAMMA-GLUTAMYLTRANSFERASE INCREASED [None]
